FAERS Safety Report 6253252-X (Version None)
Quarter: 2009Q3

REPORT INFORMATION
  Report Type: 
  Country: None (occurrence: None)
  Receive Date: 20090701
  Receipt Date: 20090626
  Transmission Date: 20100115
  Serious: Yes (Hospitalization)
  Sender: FDA-Public Use
  Company Number: IT-CELGENEUS-083-C5013-09042064

PATIENT
  Sex: Female
  Weight: 69 kg

DRUGS (12)
  1. PLACEBO FOR CC-5013 [Suspect]
     Indication: MULTIPLE MYELOMA
     Route: 048
     Dates: start: 20080325
  2. PLACEBO FOR CC-5013 [Suspect]
     Route: 048
     Dates: start: 20081202
  3. PLACEBO FOR CC-5013 [Suspect]
     Route: 048
     Dates: start: 20090324, end: 20090423
  4. MELPHALAN [Suspect]
     Indication: MULTIPLE MYELOMA
     Route: 048
     Dates: start: 20080325
  5. MELPHALAN [Suspect]
     Route: 048
     Dates: start: 20081104, end: 20081107
  6. PREDNISONE [Suspect]
     Indication: MULTIPLE MYELOMA
     Route: 048
     Dates: start: 20080325
  7. PREDNISONE [Suspect]
     Route: 048
     Dates: start: 20081104, end: 20081107
  8. MANIDIPINE CLODRONATE [Concomitant]
     Indication: HYPERTENSION
     Route: 048
     Dates: start: 20060101
  9. VALSARTAN [Concomitant]
     Indication: HYPERTENSION
     Route: 048
     Dates: start: 20060101
  10. CHLOROTHIAZIDE [Concomitant]
     Indication: HYPERTENSION
     Route: 048
     Dates: start: 20060101
  11. ACETYLSALICYLIC ACID [Concomitant]
     Indication: THROMBOSIS PROPHYLAXIS
     Route: 048
     Dates: start: 20080325
  12. LANSOPRAZOLE [Concomitant]
     Indication: PROPHYLAXIS
     Route: 048
     Dates: start: 20080325

REACTIONS (2)
  - MENINGITIS [None]
  - NEUROPATHY PERIPHERAL [None]
